FAERS Safety Report 9781339 (Version 1)
Quarter: 2013Q4

REPORT INFORMATION
  Report Type: Spontaneous
  Country: ES (occurrence: ES)
  Receive Date: 20131224
  Receipt Date: 20131224
  Transmission Date: 20140711
  Serious: Yes (Other)
  Sender: FDA-Public Use
  Company Number: ES-JNJFOC-20131213794

PATIENT
  Age: 90 Year
  Sex: Female

DRUGS (1)
  1. PONTALSIC [Suspect]
     Indication: PAIN
     Route: 048
     Dates: start: 20131020

REACTIONS (3)
  - Agitation [Unknown]
  - Medication error [Unknown]
  - Hallucination [Unknown]
